FAERS Safety Report 9917933 (Version 3)
Quarter: 2015Q4

REPORT INFORMATION
  Report Type: Report from Study
  Country: GB (occurrence: GB)
  Receive Date: 20140222
  Receipt Date: 20151204
  Transmission Date: 20160305
  Serious: Yes (Other)
  Sender: FDA-Public Use
  Company Number: GB-ROCHE-1351179

PATIENT
  Age: 66 Year
  Sex: Female
  Weight: 66.2 kg

DRUGS (3)
  1. DALTEPARIN [Concomitant]
     Active Substance: DALTEPARIN
     Indication: THROMBOSIS
     Dosage: 12500 UNITS
     Route: 065
     Dates: start: 20140210
  2. BEVACIZUMAB [Suspect]
     Active Substance: BEVACIZUMAB
     Indication: COLON CANCER
     Dosage: LAST DOSE PRIOR TO SAE: 20/NOV/2013
     Route: 042
     Dates: start: 20131106, end: 20140709
  3. DEXAMETHASONE. [Concomitant]
     Active Substance: DEXAMETHASONE
     Route: 048
     Dates: start: 20140212, end: 20140219

REACTIONS (6)
  - Epistaxis [Recovered/Resolved]
  - Fatigue [Recovered/Resolved]
  - Palmar-plantar erythrodysaesthesia syndrome [Recovered/Resolved]
  - Superior vena cava occlusion [Recovered/Resolved]
  - Nausea [Recovered/Resolved]
  - Dysaesthesia [Recovered/Resolved]

NARRATIVE: CASE EVENT DATE: 20131106
